FAERS Safety Report 8028744-3 (Version None)
Quarter: 2012Q1

REPORT INFORMATION
  Report Type: 
  Country: None (occurrence: None)
  Receive Date: 20120106
  Receipt Date: 20120103
  Transmission Date: 20120608
  Serious: Yes (Hospitalization)
  Sender: FDA-Public Use
  Company Number: US-MERCK-1106USA02214

PATIENT
  Age: 77 Year
  Sex: Female
  Weight: 69 kg

DRUGS (6)
  1. ATENOLOL [Concomitant]
     Route: 048
     Dates: start: 20010101
  2. RALOXIFENE HYDROCHLORIDE [Concomitant]
     Indication: OSTEOPOROSIS
     Route: 048
     Dates: start: 20010101
  3. FOSAMAX [Suspect]
     Indication: OSTEOPOROSIS
     Route: 048
     Dates: start: 20010129, end: 20091011
  4. LISINOPRIL [Concomitant]
     Route: 048
     Dates: start: 20010101
  5. CALCIUM (UNSPECIFIED) [Concomitant]
     Route: 065
  6. FOSAMAX [Suspect]
     Indication: OSTEOPENIA
     Route: 048
     Dates: start: 20010129, end: 20091011

REACTIONS (9)
  - FALL [None]
  - CALCIUM DEFICIENCY [None]
  - MIGRAINE [None]
  - VITAMIN D DEFICIENCY [None]
  - ORAL DISORDER [None]
  - TOOTH DISORDER [None]
  - HYPERTENSION [None]
  - TOOTH LOSS [None]
  - FEMUR FRACTURE [None]
